FAERS Safety Report 15667196 (Version 1)
Quarter: 2018Q4

REPORT INFORMATION
  Report Type: Spontaneous
  Country: US (occurrence: US)
  Receive Date: 20181128
  Receipt Date: 20181128
  Transmission Date: 20190205
  Serious: No
  Sender: FDA-Public Use
  Company Number: US-ROCHE-2107559

PATIENT
  Age: 46 Year
  Sex: Male
  Weight: 58.57 kg

DRUGS (5)
  1. CLARITIN [Concomitant]
     Active Substance: LORATADINE
     Indication: PREMEDICATION
     Route: 048
     Dates: start: 20180412, end: 20180412
  2. SOLU-MEDROL [Concomitant]
     Active Substance: METHYLPREDNISOLONE SODIUM SUCCINATE
     Indication: PREMEDICATION
     Route: 042
     Dates: start: 20180412, end: 20180412
  3. BENADRYL [Concomitant]
     Active Substance: DIPHENHYDRAMINE HYDROCHLORIDE
     Indication: PREMEDICATION
     Dosage: GIVEN ONCE AS PRE-MEDICATION AND TWICE FOR ITCHING AND HIVES
     Route: 042
     Dates: start: 20180412, end: 20180412
  4. OCREVUS [Suspect]
     Active Substance: OCRELIZUMAB
     Indication: MULTIPLE SCLEROSIS
     Dosage: 300MG/10ML
     Route: 042
     Dates: start: 20180412, end: 20180412
  5. TYLENOL #1 (UNITED STATES) [Concomitant]
     Indication: PREMEDICATION
     Route: 048
     Dates: start: 20180412, end: 20180412

REACTIONS (2)
  - Urticaria [Recovered/Resolved]
  - Pruritus [Recovered/Resolved]

NARRATIVE: CASE EVENT DATE: 20180412
